FAERS Safety Report 12763478 (Version 1)
Quarter: 2016Q3

REPORT INFORMATION
  Report Type: Spontaneous
  Country: US (occurrence: US)
  Receive Date: 20160915
  Receipt Date: 20160915
  Transmission Date: 20161109
  Serious: No
  Sender: FDA-Public Use
  Company Number: None

PATIENT
  Age: 83 Year
  Sex: Female

DRUGS (1)
  1. IBRANCE [Suspect]
     Active Substance: PALBOCICLIB
     Indication: BREAST CANCER
     Dosage: IBRANCE 100MG - ORALLY - DAILY FOR 21 DAYS THEN 7
     Route: 048
     Dates: start: 20160416

REACTIONS (1)
  - Headache [None]

NARRATIVE: CASE EVENT DATE: 20160416
